FAERS Safety Report 7313232-X (Version None)
Quarter: 2011Q1

REPORT INFORMATION
  Report Type: 
  Country: None (occurrence: None)
  Receive Date: 20110215
  Receipt Date: 20110215
  Transmission Date: 20110831
  Serious: No
  Sender: FDA-Public Use
  Company Number: None

PATIENT

DRUGS (3)
  1. PRILOSEC [Suspect]
  2. MIRAPEX [Suspect]
     Dates: end: 20101212
  3. LIPITOR [Suspect]

REACTIONS (6)
  - DRUG WITHDRAWAL SYNDROME [None]
  - OEDEMA PERIPHERAL [None]
  - MUSCULOSKELETAL STIFFNESS [None]
  - PAIN IN EXTREMITY [None]
  - ARTHRALGIA [None]
  - PROSTATITIS [None]
